FAERS Safety Report 24878044 (Version 1)
Quarter: 2025Q1

REPORT INFORMATION
  Report Type: Spontaneous
  Country: US (occurrence: None)
  Receive Date: 20250123
  Receipt Date: 20250123
  Transmission Date: 20250409
  Serious: Yes (Hospitalization)
  Sender: FDA-CTU
  Company Number: None

PATIENT
  Sex: Male
  Weight: 177 kg

DRUGS (5)
  1. CISPLATIN [Suspect]
     Active Substance: CISPLATIN
  2. FILGRASTIM [Suspect]
     Active Substance: FILGRASTIM
  3. IFOSFAMIDE [Suspect]
     Active Substance: IFOSFAMIDE
  4. TAXOL [Suspect]
     Active Substance: PACLITAXEL
  5. NEULASTA [Suspect]
     Active Substance: PEGFILGRASTIM

REACTIONS (3)
  - Cough [None]
  - Wound evisceration [None]
  - Post procedural complication [None]

NARRATIVE: CASE EVENT DATE: 20191230
